FAERS Safety Report 25458933 (Version 1)
Quarter: 2025Q2

REPORT INFORMATION
  Report Type: Spontaneous
  Country: CN (occurrence: CN)
  Receive Date: 20250620
  Receipt Date: 20250620
  Transmission Date: 20250717
  Serious: Yes (Congenital Anomaly, Other)
  Sender: BAXTER
  Company Number: None

PATIENT
  Age: 41 Year
  Sex: Female
  Weight: 57.2 kg

DRUGS (2)
  1. CYCLOPHOSPHAMIDE [Suspect]
     Active Substance: CYCLOPHOSPHAMIDE
     Indication: Breast cancer female
     Dosage: 0.9 G, QD
     Route: 041
     Dates: start: 20250517, end: 20250517
  2. DOCETAXEL [Suspect]
     Active Substance: DOCETAXEL
     Indication: Breast cancer female
     Dosage: 110 MG, QD
     Route: 041
     Dates: start: 20250517, end: 20250517

REACTIONS (11)
  - Hyperpyrexia [Unknown]
  - White blood cell count decreased [Recovering/Resolving]
  - Infection [Recovering/Resolving]
  - Myelosuppression [Unknown]
  - Granulocyte count decreased [Unknown]
  - Pharyngeal ulceration [Unknown]
  - Oropharyngeal pain [Unknown]
  - Eye pain [Recovering/Resolving]
  - C-reactive protein increased [Unknown]
  - Chills [Unknown]
  - Asthenia [Unknown]

NARRATIVE: CASE EVENT DATE: 20250526
